FAERS Safety Report 7759776-8 (Version None)
Quarter: 2011Q3

REPORT INFORMATION
  Report Type: 
  Country: None (occurrence: None)
  Receive Date: 20110915
  Receipt Date: 20110902
  Transmission Date: 20111222
  Serious: Yes (Disabling)
  Sender: FDA-Public Use
  Company Number: GER/UKI/11/0021029

PATIENT
  Age: 66 Year
  Sex: Male
  Weight: 125 kg

DRUGS (21)
  1. FERROUS SULFATE TAB [Concomitant]
  2. E45 ITCH RELIEF (E45 ITCH RELIEF) [Concomitant]
  3. NITROGLYCERIN [Concomitant]
  4. METOCLOPRAMIDE [Concomitant]
  5. PRAVASTATIN [Concomitant]
  6. VENTOLIN [Concomitant]
  7. MORPHINE SULFATE [Concomitant]
  8. OMEPRAZOLE [Concomitant]
  9. RANITIDINE HYDROCHLORIDE [Concomitant]
  10. BISOPROLOL FUMARATE [Concomitant]
  11. DIHYDROCODEINE BITARTRATE INJ [Concomitant]
  12. FUROSEMIDE [Concomitant]
  13. CLOPIDOGREL [Suspect]
     Indication: PRODUCT USED FOR UNKNOWN INDICATION
     Dates: start: 20110715
  14. INADINE (POVIDONE-IODINE) [Concomitant]
  15. NICORANDIL (NICORANDIL) [Concomitant]
  16. NOVO NORDISK A/S HUMAN INSULATARD INJECTION 40IU/ML-5X10ML V (INSULIN [Concomitant]
  17. FLOXACILLIN SODIUM [Concomitant]
  18. GABAPENTIN [Concomitant]
  19. KETOPROFEN [Concomitant]
  20. LOPERAMIDE [Concomitant]
  21. SLOZEM (DILTIAZEM HYDROCHLORIDE) [Concomitant]

REACTIONS (2)
  - DYSPNOEA [None]
  - DIZZINESS [None]
